FAERS Safety Report 5500281-7 (Version None)
Quarter: 2007Q4

REPORT INFORMATION
  Report Type: 
  Country: None (occurrence: None)
  Receive Date: 20071025
  Receipt Date: 20071001
  Transmission Date: 20080405
  Serious: Yes (Death)
  Sender: FDA-Public Use
  Company Number: DEPFP-S-20070042

PATIENT
  Age: 45 Year
  Sex: Female

DRUGS (2)
  1. NAVELBINE [Suspect]
     Indication: BREAST CANCER METASTATIC
     Dosage: 30 MG IV
     Route: 042
     Dates: start: 20060407, end: 20060413
  2. AVASTIN [Suspect]
     Indication: BREAST CANCER METASTATIC
     Dosage: 10 MG IV
     Route: 042
     Dates: start: 20060407, end: 20060413

REACTIONS (4)
  - COUGH [None]
  - LARGE INTESTINE PERFORATION [None]
  - METASTASES TO CENTRAL NERVOUS SYSTEM [None]
  - PERITONITIS [None]
